FAERS Safety Report 24694768 (Version 1)
Quarter: 2024Q4

REPORT INFORMATION
  Report Type: Spontaneous
  Country: US (occurrence: US)
  Receive Date: 20241204
  Receipt Date: 20241204
  Transmission Date: 20250114
  Serious: No
  Sender: PACIRA
  Company Number: US-ORG100016242-2024000323

PATIENT
  Age: 68 Year
  Sex: Female
  Weight: 97.5 kg

DRUGS (1)
  1. ZILRETTA [Suspect]
     Active Substance: TRIAMCINOLONE ACETONIDE
     Indication: Arthralgia
     Dosage: TWO INJECTIONS IN BOTH KNEES ON THE SAME DAY
     Route: 050
     Dates: start: 20240506, end: 20240506

REACTIONS (4)
  - Myalgia [Recovering/Resolving]
  - Pain in extremity [Recovering/Resolving]
  - Peripheral swelling [Recovering/Resolving]
  - Muscle spasms [Recovering/Resolving]

NARRATIVE: CASE EVENT DATE: 20240501
